FAERS Safety Report 18807365 (Version 1)
Quarter: 2021Q1

REPORT INFORMATION
  Report Type: Spontaneous
  Country: IQ (occurrence: IQ)
  Receive Date: 20210129
  Receipt Date: 20210129
  Transmission Date: 20210419
  Serious: No
  Sender: FDA-Public Use
  Company Number: IQ-LUPIN PHARMACEUTICALS INC.-2021-00718

PATIENT
  Age: 36 Year
  Sex: Male

DRUGS (6)
  1. NORMAL SALINE [Suspect]
     Active Substance: SODIUM CHLORIDE
     Indication: SCIATICA
     Dosage: 6 MILLILITER?EPIDURAL CORTICOSTEROID INJECTION PREPARED WITH A MIXTURE OF METHYLPREDNISOLONE ACETATE
     Route: 008
  2. POVIDONE?IODINE. [Concomitant]
     Active Substance: POVIDONE-IODINE
     Indication: STERILISATION
     Dosage: UNK
     Route: 065
  3. CHLORHEXIDINE [Concomitant]
     Active Substance: CHLORHEXIDINE
     Indication: STERILISATION
     Dosage: UNK
     Route: 065
  4. METHYLPREDNISOLONE. [Suspect]
     Active Substance: METHYLPREDNISOLONE
     Indication: SCIATICA
     Dosage: 2 MILLILITER?EPIDURAL CORTICOSTEROID INJECTION PREPARED WITH A MIXTURE OF METHYLPREDNISOLONE ACETATE
     Route: 008
  5. BUPIVACAINE. [Suspect]
     Active Substance: BUPIVACAINE
     Indication: SCIATICA
     Dosage: 6 MILLILITER?EPIDURAL CORTICOSTEROID INJECTION PREPARED WITH A MIXTURE OF METHYLPREDNISOLONE ACETATE
     Route: 008
  6. LIGNOCAINE [LIDOCAINE] [Concomitant]
     Active Substance: LIDOCAINE
     Indication: LOCAL ANAESTHESIA
     Dosage: UNK
     Route: 065

REACTIONS (2)
  - Injection site pain [Recovered/Resolved]
  - Skin discolouration [Recovered/Resolved]
